FAERS Safety Report 6240744-2 (Version None)
Quarter: 2009Q2

REPORT INFORMATION
  Report Type: 
  Country: None (occurrence: None)
  Receive Date: 20090623
  Receipt Date: 20090610
  Transmission Date: 20091009
  Serious: Yes (Hospitalization)
  Sender: FDA-Public Use
  Company Number: ES-ELI_LILLY_AND_COMPANY-ES200906002852

PATIENT
  Age: 63 Year
  Sex: Female
  Weight: 41 kg

DRUGS (2)
  1. FORTEO [Suspect]
     Indication: OSTEOPOROSIS
     Dosage: 20 UG, UNK
     Dates: start: 20090212, end: 20090401
  2. MINOTON [Concomitant]

REACTIONS (8)
  - ASTHENIA [None]
  - BLOOD PRESSURE DECREASED [None]
  - CHEST PAIN [None]
  - DECREASED APPETITE [None]
  - DEHYDRATION [None]
  - GASTROENTERITIS [None]
  - GASTROINTESTINAL INFLAMMATION [None]
  - WEIGHT DECREASED [None]
